FAERS Safety Report 23241562 (Version 1)
Quarter: 2023Q4

REPORT INFORMATION
  Report Type: Spontaneous
  Country: FR (occurrence: FR)
  Receive Date: 20231129
  Receipt Date: 20231129
  Transmission Date: 20240110
  Serious: Yes (Hospitalization)
  Sender: FDA-Public Use
  Company Number: None

PATIENT
  Age: 84 Year
  Sex: Male
  Weight: 84 kg

DRUGS (5)
  1. ALLOPURINOL [Suspect]
     Active Substance: ALLOPURINOL
     Indication: Diffuse large B-cell lymphoma
     Dosage: 200.000MG QD
     Route: 048
     Dates: start: 20230623, end: 20230703
  2. ACUPAN [Suspect]
     Active Substance: NEFOPAM HYDROCHLORIDE
     Indication: Pain
     Dosage: 1.000DF
     Route: 042
     Dates: start: 20230623, end: 20230627
  3. ELIQUIS [Suspect]
     Active Substance: APIXABAN
     Indication: Diffuse large B-cell lymphoma
     Dosage: 2.500MG
     Route: 048
     Dates: start: 20230623, end: 20230703
  4. TAFASITAMAB [Suspect]
     Active Substance: TAFASITAMAB
     Indication: Product used for unknown indication
     Dosage: 972.000MG
     Route: 042
     Dates: start: 20230623, end: 20230626
  5. REVLIMID [Suspect]
     Active Substance: LENALIDOMIDE
     Indication: Product used for unknown indication
     Dosage: 25.000MG QD
     Route: 048
     Dates: start: 20230623, end: 20230703

REACTIONS (2)
  - Drug reaction with eosinophilia and systemic symptoms [Recovering/Resolving]
  - Haemophagocytic lymphohistiocytosis [Recovering/Resolving]

NARRATIVE: CASE EVENT DATE: 20230626
